FAERS Safety Report 13327074 (Version 1)
Quarter: 2017Q1

REPORT INFORMATION
  Report Type: Spontaneous
  Country: US (occurrence: US)
  Receive Date: 20170313
  Receipt Date: 20170313
  Transmission Date: 20170428
  Serious: Yes (Other)
  Sender: FDA-Public Use
  Company Number: US-ROCHE-1900623

PATIENT
  Sex: Female
  Weight: 68.1 kg

DRUGS (12)
  1. KLONOPIN [Suspect]
     Active Substance: CLONAZEPAM
     Route: 048
     Dates: start: 1997
  2. GABAPENTIN. [Concomitant]
     Active Substance: GABAPENTIN
     Route: 048
     Dates: start: 2005
  3. TRAMADOL. [Concomitant]
     Active Substance: TRAMADOL
     Indication: PAIN
     Route: 048
     Dates: start: 2014, end: 201611
  4. REQUIP [Concomitant]
     Active Substance: ROPINIROLE HYDROCHLORIDE
     Indication: RESTLESS LEGS SYNDROME
     Route: 048
     Dates: start: 1997, end: 2007
  5. SOMA [Concomitant]
     Active Substance: CARISOPRODOL
     Route: 065
     Dates: start: 2014, end: 201611
  6. PRISTIQ EXTENDED-RELEASE [Concomitant]
     Active Substance: DESVENLAFAXINE SUCCINATE
     Indication: DEPRESSION
     Route: 048
     Dates: start: 2015
  7. PRISTIQ EXTENDED-RELEASE [Concomitant]
     Active Substance: DESVENLAFAXINE SUCCINATE
     Indication: AGORAPHOBIA
  8. PRISTIQ EXTENDED-RELEASE [Concomitant]
     Active Substance: DESVENLAFAXINE SUCCINATE
     Indication: POST-TRAUMATIC STRESS DISORDER
  9. LIDOCAINE. [Concomitant]
     Active Substance: LIDOCAINE
     Route: 065
  10. KLONOPIN [Suspect]
     Active Substance: CLONAZEPAM
     Indication: RESTLESS LEGS SYNDROME
     Route: 048
     Dates: start: 1989, end: 1997
  11. SOMA [Concomitant]
     Active Substance: CARISOPRODOL
     Indication: MUSCLE SPASMS
     Dosage: NO
     Route: 048
     Dates: start: 2005, end: 2006
  12. PRISTIQ EXTENDED-RELEASE [Concomitant]
     Active Substance: DESVENLAFAXINE SUCCINATE
     Indication: SUICIDAL IDEATION

REACTIONS (21)
  - Migraine [Recovered/Resolved]
  - Muscle spasms [Unknown]
  - Suicide attempt [Unknown]
  - Back injury [Not Recovered/Not Resolved]
  - Agoraphobia [Recovering/Resolving]
  - Suicidal ideation [Recovering/Resolving]
  - Cerebrovascular accident [Recovered/Resolved]
  - Panic attack [Recovering/Resolving]
  - Craniocerebral injury [Unknown]
  - Facial pain [Recovered/Resolved]
  - Paraesthesia [Not Recovered/Not Resolved]
  - Amnesia [Recovered/Resolved]
  - Depression [Recovering/Resolving]
  - Hypoaesthesia [Not Recovered/Not Resolved]
  - Pain [Unknown]
  - Palpitations [Recovered/Resolved]
  - Intervertebral disc protrusion [Not Recovered/Not Resolved]
  - Renal impairment [Unknown]
  - Hypertension [Recovered/Resolved]
  - Nerve injury [Not Recovered/Not Resolved]
  - Loss of consciousness [Recovered/Resolved]

NARRATIVE: CASE EVENT DATE: 1992
